FAERS Safety Report 16148577 (Version 1)
Quarter: 2019Q2

REPORT INFORMATION
  Report Type: Spontaneous
  Country: ES (occurrence: ES)
  Receive Date: 20190402
  Receipt Date: 20190402
  Transmission Date: 20190711
  Serious: Yes (Hospitalization, Other)
  Sender: FDA-Public Use
  Company Number: ES-PFIZER INC-2019136856

PATIENT
  Age: 64 Year
  Sex: Male

DRUGS (8)
  1. OMEPRAZOLE. [Concomitant]
     Active Substance: OMEPRAZOLE
     Dosage: 20 MG, 1X/DAY (EVERY 24H)
     Route: 048
     Dates: start: 20190118
  2. PARACETAMOL [Concomitant]
     Active Substance: ACETAMINOPHEN
     Dosage: 1 G, 3X/DAY (EVERY 8H)
     Dates: start: 20190130
  3. SPIRONOLACTONE. [Suspect]
     Active Substance: SPIRONOLACTONE
     Dosage: 25 MG, 1X/DAY (EVERY 24 H)
     Route: 048
     Dates: start: 20190213, end: 20190218
  4. PREDNISONE. [Suspect]
     Active Substance: PREDNISONE
     Dosage: 20 MG, 1X/DAY (EVERY 24H)
     Route: 048
     Dates: start: 20190211, end: 20190219
  5. CLOMETHIAZOLE [Suspect]
     Active Substance: CLOMETHIAZOLE
     Dosage: 192 MG, 3X/DAY (EVERY 8H)
     Route: 048
     Dates: start: 20190118, end: 20190218
  6. BEMIPARIN [Concomitant]
     Active Substance: BEMIPARIN
     Dosage: UNK (2500)
  7. ENALAPRIL TEVA [Suspect]
     Active Substance: ENALAPRIL MALEATE
     Indication: CARDIAC FAILURE
     Dosage: 5 MG, 2X/DAY (EVERY 12H)
     Route: 048
     Dates: start: 20190215, end: 20190218
  8. FUROSEMIDE. [Concomitant]
     Active Substance: FUROSEMIDE
     Dosage: UNK, 2X/DAY (40-20-0)

REACTIONS (3)
  - Hepatitis [Recovering/Resolving]
  - Hypertransaminasaemia [Recovering/Resolving]
  - Jaundice [Recovering/Resolving]

NARRATIVE: CASE EVENT DATE: 20190215
